FAERS Safety Report 18923138 (Version 2)
Quarter: 2021Q2

REPORT INFORMATION
  Report Type: Spontaneous
  Country: US (occurrence: US)
  Receive Date: 20210222
  Receipt Date: 20210526
  Transmission Date: 20210717
  Serious: No
  Sender: FDA-Public Use
  Company Number: US-CELGENEUS-USA-20210204713

PATIENT
  Age: 52 Year
  Sex: Female
  Weight: 127.57 kg

DRUGS (1)
  1. REVLIMID [Suspect]
     Active Substance: LENALIDOMIDE
     Indication: PLASMA CELL MYELOMA
     Dosage: 10 MILLIGRAM
     Route: 048
     Dates: start: 20190501

REACTIONS (3)
  - COVID-19 [Recovered/Resolved]
  - Fatigue [Unknown]
  - Arthropathy [Unknown]

NARRATIVE: CASE EVENT DATE: 20201204
